FAERS Safety Report 10729064 (Version 2)
Quarter: 2015Q1

REPORT INFORMATION
  Report Type: Spontaneous
  Country: US (occurrence: US)
  Receive Date: 20150122
  Receipt Date: 20150212
  Transmission Date: 20150721
  Serious: Yes (Hospitalization)
  Sender: FDA-Public Use
  Company Number: US-009507513-1501USA006582

PATIENT
  Sex: Female

DRUGS (1)
  1. PEGINTRON [Suspect]
     Active Substance: PEGINTERFERON ALFA-2B
     Dosage: 120 MCG/0.5 ML , QW. DILUTE WITH 0.7 ML OF DILUENT AND INJECT 0.4MLSUBCUTANEOUSLY EVERY WEEK
     Route: 058

REACTIONS (1)
  - Adverse event [Unknown]
